FAERS Safety Report 8142489-0 (Version None)
Quarter: 2012Q1

REPORT INFORMATION
  Report Type: 
  Country: None (occurrence: None)
  Receive Date: 20120216
  Receipt Date: 20120209
  Transmission Date: 20120608
  Serious: Yes (Hospitalization)
  Sender: FDA-Public Use
  Company Number: DK-NOVOPROD-339477

PATIENT
  Age: 68 Year
  Sex: Female

DRUGS (6)
  1. METFORMIN HCL [Concomitant]
     Route: 048
  2. LOSARTANKALIUM/HYDROCHLOORTHIAZIDE [Concomitant]
     Route: 048
  3. VICTOZA [Suspect]
     Indication: TYPE 2 DIABETES MELLITUS
     Dosage: 1.2 MG, QD
     Route: 058
     Dates: start: 20110915, end: 20110930
  4. SPIRON                             /00006201/ [Concomitant]
     Route: 048
  5. AMLODIPINE BESYLATE [Concomitant]
     Route: 048
  6. HJERTEMAGNYL                       /00228701/ [Concomitant]
     Route: 048

REACTIONS (5)
  - BLOOD PRESSURE INCREASED [None]
  - CHEST DISCOMFORT [None]
  - HEADACHE [None]
  - PALPITATIONS [None]
  - DIZZINESS [None]
